FAERS Safety Report 6252952-5 (Version None)
Quarter: 2009Q3

REPORT INFORMATION
  Report Type: 
  Country: None (occurrence: None)
  Receive Date: 20090701
  Receipt Date: 20090623
  Transmission Date: 20100115
  Serious: Yes (Death)
  Sender: FDA-Public Use
  Company Number: B0539912A

PATIENT
  Sex: Female
  Weight: 50 kg

DRUGS (3)
  1. FLOLAN [Suspect]
     Indication: PULMONARY ARTERIAL HYPERTENSION
     Route: 042
     Dates: start: 20020124, end: 20041101
  2. WARFARIN POTASSIUM [Concomitant]
     Route: 048
  3. FUROSEMIDE INTENSOL [Concomitant]
     Route: 048

REACTIONS (1)
  - DEATH [None]
